FAERS Safety Report 21121621 (Version 1)
Quarter: 2022Q3

REPORT INFORMATION
  Report Type: Spontaneous
  Country: FR (occurrence: FR)
  Receive Date: 20220722
  Receipt Date: 20220722
  Transmission Date: 20221026
  Serious: Yes (Other)
  Sender: FDA-Public Use
  Company Number: None

PATIENT
  Age: 63 Year
  Sex: Male

DRUGS (2)
  1. KEYTRUDA [Suspect]
     Active Substance: PEMBROLIZUMAB
     Indication: Clear cell renal cell carcinoma
     Dosage: 200MG
     Route: 042
     Dates: start: 20211202, end: 20220609
  2. INLYTA [Concomitant]
     Active Substance: AXITINIB
     Indication: Clear cell renal cell carcinoma
     Dosage: 5MG
     Route: 048
     Dates: start: 20211202, end: 20220224

REACTIONS (3)
  - Bowel movement irregularity [Recovering/Resolving]
  - Mucosal inflammation [Recovering/Resolving]
  - Rash [Recovering/Resolving]

NARRATIVE: CASE EVENT DATE: 20220224
